FAERS Safety Report 6039691-0 (Version None)
Quarter: 2009Q1

REPORT INFORMATION
  Report Type: 
  Country: None (occurrence: None)
  Receive Date: 20090116
  Receipt Date: 20090113
  Transmission Date: 20090719
  Serious: Yes (Death)
  Sender: FDA-Public Use
  Company Number: DE-AVENTIS-200910112DE

PATIENT
  Age: 72 Year
  Sex: Female

DRUGS (13)
  1. ENOXAPARIN SODIUM [Suspect]
     Indication: DRUG USE FOR UNKNOWN INDICATION
     Dosage: DOSE: 1-0-0
     Route: 058
     Dates: start: 20060929
  2. KEPPRA [Suspect]
     Dosage: DOSE: 0-0-1, 1-0-1
     Route: 048
     Dates: start: 20060929, end: 20061003
  3. GLYBURIDE [Concomitant]
     Indication: DIABETES MELLITUS
     Dosage: DOSE: 1-0-0
     Route: 048
     Dates: start: 20060816
  4. RAMIPRIL [Concomitant]
     Dosage: DOSE: 15/5
     Route: 048
     Dates: start: 20060815
  5. DEXAMETHASONE TAB [Concomitant]
     Indication: PROPHYLAXIS
     Dosage: DOSE: 1-0-0
     Route: 048
     Dates: start: 20060815, end: 20060927
  6. DEXAMETHASONE TAB [Concomitant]
     Dosage: DOSE: 1-0-1
     Route: 048
     Dates: start: 20060929
  7. PANTOZOL                           /01263202/ [Concomitant]
     Dosage: DOSE: NOT REPORTED
     Route: 048
     Dates: start: 20060815
  8. EXELON                             /01383202/ [Concomitant]
     Dosage: DOSE: 1-0-1
     Route: 048
     Dates: start: 20060914
  9. PROMETHAZINE [Concomitant]
     Indication: RESTLESSNESS
     Dosage: DOSE: 0-0-5
     Route: 048
     Dates: start: 20061003, end: 20061003
  10. CETIRIZINE [Concomitant]
     Dosage: DOSE: 0-1-0
     Dates: start: 20061003
  11. ERGENYL CHRONO [Concomitant]
     Dosage: DOSE: 0-0-1
     Route: 048
     Dates: start: 20061003
  12. ERGENYL CHRONO [Concomitant]
     Dosage: DOSE: 1-0-1
     Route: 048
  13. DERMATOP [Concomitant]
     Indication: SKIN LESION
     Dosage: DOSE: 1-0-1
     Route: 061

REACTIONS (1)
  - TOXIC EPIDERMAL NECROLYSIS [None]
